FAERS Safety Report 4848770-2 (Version None)
Quarter: 2005Q4

REPORT INFORMATION
  Report Type: 
  Country: None (occurrence: None)
  Receive Date: 20051206
  Receipt Date: 20051118
  Transmission Date: 20060501
  Serious: Yes (Hospitalization)
  Sender: FDA-Public Use
  Company Number: DE200511001817

PATIENT

DRUGS (1)
  1. YENTREVE (DULOXETINE HYDROCHLORIDE) CAPSULE [Suspect]
     Dosage: ORAL
     Route: 048

REACTIONS (2)
  - GASTROINTESTINAL NEOPLASM [None]
  - INTESTINAL FUNCTIONAL DISORDER [None]
